FAERS Safety Report 5365576-9 (Version None)
Quarter: 2007Q2

REPORT INFORMATION
  Report Type: 
  Country: None (occurrence: None)
  Receive Date: 20070621
  Receipt Date: 20070612
  Transmission Date: 20071010
  Serious: Yes (Hospitalization)
  Sender: FDA-Public Use
  Company Number: FR-ASTRAZENECA-2007CG00901

PATIENT
  Age: 50 Year
  Sex: Female

DRUGS (6)
  1. DIPRIVAN [Suspect]
     Indication: GENERAL ANAESTHESIA
     Route: 042
  2. NAROPEINE [Suspect]
     Indication: LOCAL ANAESTHESIA
     Route: 053
  3. SUFENTA [Suspect]
     Indication: GENERAL ANAESTHESIA
     Route: 042
  4. HYPNOVEL [Suspect]
     Indication: GENERAL ANAESTHESIA
     Route: 042
  5. MORPHINE [Suspect]
  6. PERFALGAN [Suspect]
     Route: 042

REACTIONS (2)
  - CONVULSION [None]
  - PARESIS [None]
